FAERS Safety Report 5163430-9 (Version None)
Quarter: 2006Q4

REPORT INFORMATION
  Report Type: 
  Country: None (occurrence: None)
  Receive Date: 20061121
  Receipt Date: 20061110
  Transmission Date: 20070319
  Serious: Yes (Death)
  Sender: FDA-Public Use
  Company Number: SPV1-2006-01652

PATIENT
  Age: 30 Year

DRUGS (3)
  1. CARBAMAZEPINE [Suspect]
  2. ACETAMINOPHEN W/ PROPOXYPHENE HCL [Suspect]
  3. VENLAFAXINE HCL [Suspect]

REACTIONS (1)
  - COMPLETED SUICIDE [None]
